FAERS Safety Report 19745108 (Version 1)
Quarter: 2021Q3

REPORT INFORMATION
  Report Type: Spontaneous
  Country: US (occurrence: US)
  Receive Date: 20210824
  Receipt Date: 20210824
  Transmission Date: 20211014
  Serious: Yes (Other)
  Sender: FDA-Public Use
  Company Number: None

PATIENT
  Age: 68 Year
  Sex: Male
  Weight: 87.75 kg

DRUGS (9)
  1. ASPIRIN. [Concomitant]
     Active Substance: ASPIRIN
  2. VITA D /00318501/ [Concomitant]
     Active Substance: CHOLECALCIFEROL
  3. HYDRCHLOROZINE [Concomitant]
  4. TESTOPEL [Suspect]
     Active Substance: TESTOSTERONE
     Indication: HYPOGONADISM
     Dosage: ?          QUANTITY:10 INJECTION(S);?
     Route: 058
  5. BALANCE OF NATURE FRUIT AND VEGETABLE CAPSULES [Concomitant]
  6. CLARITIN [Concomitant]
     Active Substance: LORATADINE
  7. PRED FORTE [Concomitant]
     Active Substance: PREDNISOLONE ACETATE
  8. SHAKLEE MULTI VITAMINS [Concomitant]
  9. COQ HEART W/ RESVERATROL [Concomitant]

REACTIONS (2)
  - Hiccups [None]
  - Vocal cord dysfunction [None]

NARRATIVE: CASE EVENT DATE: 20210725
